FAERS Safety Report 7755772-5 (Version None)
Quarter: 2011Q3

REPORT INFORMATION
  Report Type: 
  Country: None (occurrence: None)
  Receive Date: 20110916
  Receipt Date: 20110914
  Transmission Date: 20111222
  Serious: Yes (Other)
  Sender: FDA-Public Use
  Company Number: PHHY2011BE82014

PATIENT

DRUGS (1)
  1. ZOMETA [Suspect]
     Indication: MULTIPLE MYELOMA
     Route: 042

REACTIONS (1)
  - OSTEONECROSIS OF JAW [None]
